FAERS Safety Report 7291892-X (Version None)
Quarter: 2011Q1

REPORT INFORMATION
  Report Type: 
  Country: None (occurrence: None)
  Receive Date: 20110214
  Receipt Date: 20110202
  Transmission Date: 20110831
  Serious: Yes (Hospitalization, Other)
  Sender: FDA-Public Use
  Company Number: PHHY2011AU07410

PATIENT
  Sex: Male

DRUGS (24)
  1. ASPIRIN [Concomitant]
     Dosage: 100 MG, QD
  2. ENOXAPARIN SODIUM [Concomitant]
     Dosage: 40 MG, QD
     Route: 058
  3. BACTRIM [Concomitant]
     Dosage: 01 TAB M, W, F
  4. LAMIVUDINE [Concomitant]
     Dosage: 100 MG, QD
  5. PRAVASTATIN [Concomitant]
     Dosage: 20 MG, NOCTE
  6. CERTICAN [Suspect]
     Dosage: 10 MG, UNK
  7. FRUSEMIDE [Concomitant]
     Dosage: 40 MG, BID
     Route: 048
  8. ACETAMINOPHEN [Concomitant]
     Dosage: 1 G, QD
     Route: 048
  9. COLOXYL WITH SENNA [Concomitant]
  10. TACROLIMUS [Concomitant]
  11. CERTICAN [Suspect]
     Dosage: 10 MG, BID
  12. MAGMIN [Concomitant]
     Dosage: 500 MG, BID
  13. LEVETIRACETAM [Concomitant]
     Dosage: 750 MG, BID
  14. GABAPENTIN [Concomitant]
     Dosage: 100 MG, TID
  15. AMITRIPTYLINE [Concomitant]
     Dosage: 25 MG, NOCTE
  16. OXYCODONE HCL [Concomitant]
     Dosage: 10 MG, Q2H
  17. METHYLPREDNISOLONE [Concomitant]
     Indication: TRANSPLANT REJECTION
     Dosage: 500 MG
     Route: 042
  18. OXYCONTIN [Concomitant]
     Dosage: 30 MG, BID
  19. STEROIDS NOS [Concomitant]
  20. ESOMEPRAZOLE [Concomitant]
     Dosage: 40 MG, QD
  21. MYCOPHENOLATE MOFETIL [Concomitant]
     Dosage: 1500 MG, BID
  22. SLOW-K [Concomitant]
  23. NOVOMIX 30 [Concomitant]
     Dosage: 38 U, UNK
     Route: 058
  24. MOVICOL [Concomitant]

REACTIONS (6)
  - LYMPHOCYTE COUNT DECREASED [None]
  - MONOCYTE COUNT INCREASED [None]
  - TRANSPLANT REJECTION [None]
  - WEIGHT INCREASED [None]
  - NEUTROPHIL COUNT INCREASED [None]
  - MALABSORPTION [None]
